FAERS Safety Report 6135160-8 (Version None)
Quarter: 2009Q1

REPORT INFORMATION
  Report Type: 
  Country: None (occurrence: None)
  Receive Date: 20090325
  Receipt Date: 20090308
  Transmission Date: 20090719
  Serious: Yes (Hospitalization)
  Sender: FDA-Public Use
  Company Number: 2006S1000462

PATIENT
  Age: 79 Year
  Sex: Female
  Weight: 78.9259 kg

DRUGS (16)
  1. PHOSPHOSODA GINGER LEMON [Suspect]
     Indication: COLONOSCOPY
     Dosage: 90 ML; TOTAL; PO
     Route: 048
     Dates: start: 20040517, end: 20040517
  2. SUBLIMAZE /00174601/ [Concomitant]
  3. VERSED [Concomitant]
  4. DIPRIVAN [Concomitant]
  5. DIPENTUM [Concomitant]
  6. ASPIRIN [Concomitant]
  7. ELVAIL /00002202/ [Concomitant]
  8. CENTRUM SILVER VITAMIN [Concomitant]
  9. .. [Concomitant]
  10. PREVACID [Concomitant]
  11. LIPITOR [Concomitant]
  12. AMBIEN [Concomitant]
  13. FOLIC ACID [Concomitant]
  14. CELEBREX [Concomitant]
  15. GLUCOSAMINE/CHONDROITIN /01625901/ [Concomitant]
  16. DULCOLAX /00064401/ [Concomitant]

REACTIONS (8)
  - ARTERIOSCLEROSIS [None]
  - GASTROINTESTINAL HAEMORRHAGE [None]
  - INFLUENZA LIKE ILLNESS [None]
  - NEPHROCALCINOSIS [None]
  - PANCREATIC DISORDER [None]
  - RENAL FAILURE ACUTE [None]
  - RENAL TUBULAR NECROSIS [None]
  - TUBULOINTERSTITIAL NEPHRITIS [None]
